FAERS Safety Report 12525996 (Version 1)
Quarter: 2016Q3

REPORT INFORMATION
  Report Type: Spontaneous
  Country: ES (occurrence: ES)
  Receive Date: 20160705
  Receipt Date: 20160705
  Transmission Date: 20161109
  Serious: Yes (Other)
  Sender: FDA-Public Use
  Company Number: ES-GLENMARK PHARMACEUTICALS INC, USA.-2016GMK023506

PATIENT

DRUGS (1)
  1. VORICONAZOLE TABLETS [Suspect]
     Active Substance: VORICONAZOLE
     Indication: ASPERGILLUS INFECTION
     Dosage: UNK
     Route: 065

REACTIONS (2)
  - Product use issue [Unknown]
  - Toxicity to various agents [Unknown]
